FAERS Safety Report 15164288 (Version 8)
Quarter: 2021Q2

REPORT INFORMATION
  Report Type: Spontaneous
  Country: US (occurrence: US)
  Receive Date: 20180719
  Receipt Date: 20210504
  Transmission Date: 20210716
  Serious: Yes (Other)
  Sender: FDA-Public Use
  Company Number: US-PFIZER INC-2018289941

PATIENT
  Age: 12 Year
  Sex: Male
  Weight: 55.78 kg

DRUGS (5)
  1. GENOTROPIN [Suspect]
     Active Substance: SOMATROPIN
     Dosage: 1.7 MG, DAILY
  2. GENOTROPIN [Suspect]
     Active Substance: SOMATROPIN
     Dosage: 2.1 MG, 1X/DAY (2.1MG INJECTIONS AT NIGHT)
  3. GENOTROPIN [Suspect]
     Active Substance: SOMATROPIN
     Indication: GROWTH HORMONE DEFICIENCY
     Dosage: 1.8 MG, DAILY
     Dates: start: 20110922, end: 20110922
  4. GENOTROPIN [Suspect]
     Active Substance: SOMATROPIN
     Dosage: 2.2 MG, DAILY
  5. GENOTROPIN [Suspect]
     Active Substance: SOMATROPIN
     Dosage: 1.9 MG, DAILY

REACTIONS (10)
  - Enuresis [Unknown]
  - Drug dose omission by device [Unknown]
  - Product prescribing error [Unknown]
  - Product dose omission issue [Unknown]
  - Device information output issue [Unknown]
  - Limb asymmetry [Unknown]
  - Insulin-like growth factor increased [Unknown]
  - Incorrect dose administered [Unknown]
  - Arthralgia [Unknown]
  - Joint lock [Unknown]

NARRATIVE: CASE EVENT DATE: 20191112
